FAERS Safety Report 6018589-8 (Version None)
Quarter: 2008Q4

REPORT INFORMATION
  Report Type: 
  Country: None (occurrence: None)
  Receive Date: 20081223
  Receipt Date: 20081216
  Transmission Date: 20090506
  Serious: Yes (Other)
  Sender: FDA-Public Use
  Company Number: ES-ROXANE LABORATORIES, INC.-2008-RO-00445RO

PATIENT
  Age: 69 Year
  Sex: Female

DRUGS (10)
  1. AZATHIOPRINE [Suspect]
     Indication: IMMUNOSUPPRESSION
  2. CYCLOSPORINE [Suspect]
     Indication: IMMUNOSUPPRESSION
  3. STEROIDS [Suspect]
     Indication: IMMUNOSUPPRESSION
  4. CEFOTAXIME [Suspect]
     Indication: EVIDENCE BASED TREATMENT
  5. DOPAMINE HCL [Concomitant]
     Indication: HAEMODYNAMIC INSTABILITY
  6. COLLOIDS [Concomitant]
     Indication: HAEMODYNAMIC INSTABILITY
  7. FUROSEMIDE [Concomitant]
     Indication: HAEMODYNAMIC INSTABILITY
  8. VITAMIN K TAB [Concomitant]
     Indication: HAEMODYNAMIC INSTABILITY
  9. IMIPENEM [Concomitant]
     Indication: ANTIBIOTIC THERAPY
  10. CLARITHROMYCIN [Concomitant]
     Indication: ANTIBIOTIC THERAPY

REACTIONS (3)
  - INFECTION [None]
  - PNEUMONIA [None]
  - SEPSIS [None]
